FAERS Safety Report 6222321-2 (Version None)
Quarter: 2009Q2

REPORT INFORMATION
  Report Type: 
  Country: None (occurrence: None)
  Receive Date: 20090611
  Receipt Date: 20090608
  Transmission Date: 20091009
  Serious: Yes (Hospitalization, Other)
  Sender: FDA-Public Use
  Company Number: US-BAYER-200917548NA

PATIENT
  Age: 52 Year
  Sex: Female

DRUGS (1)
  1. YAZ [Suspect]
     Indication: UTERINE LEIOMYOMA
     Route: 048
     Dates: end: 20080329

REACTIONS (2)
  - MOOD SWINGS [None]
  - PULMONARY EMBOLISM [None]
